FAERS Safety Report 13443319 (Version 1)
Quarter: 2017Q2

REPORT INFORMATION
  Report Type: Spontaneous
  Country: US (occurrence: US)
  Receive Date: 20170413
  Receipt Date: 20170413
  Transmission Date: 20170830
  Serious: No
  Sender: FDA-Public Use
  Company Number: None

PATIENT
  Age: 22 Year
  Sex: Female

DRUGS (1)
  1. LUPRON DEPOT [Suspect]
     Active Substance: LEUPROLIDE ACETATE
     Indication: UTERINE DISORDER
     Dosage: EVERY 28 DAYS
     Route: 028
     Dates: start: 20170310

REACTIONS (1)
  - Nausea [None]

NARRATIVE: CASE EVENT DATE: 20170310
